FAERS Safety Report 7668914-7 (Version None)
Quarter: 2011Q3

REPORT INFORMATION
  Report Type: 
  Country: None (occurrence: None)
  Receive Date: 20110808
  Receipt Date: 20110801
  Transmission Date: 20111222
  Serious: Yes (Hospitalization)
  Sender: FDA-Public Use
  Company Number: FR-TEVA-295081ISR

PATIENT
  Age: 83 Year
  Sex: Female

DRUGS (2)
  1. AMIODARONE HCL [Suspect]
  2. CITALOPRAM HYDROBROMIDE [Interacting]

REACTIONS (2)
  - DRUG INTERACTION [None]
  - TORSADE DE POINTES [None]
